FAERS Safety Report 25276614 (Version 2)
Quarter: 2025Q2

REPORT INFORMATION
  Report Type: Spontaneous
  Country: DE (occurrence: DE)
  Receive Date: 20250507
  Receipt Date: 20250609
  Transmission Date: 20250716
  Serious: Yes (Hospitalization, Other)
  Sender: MSN LABORATORIES PRIVATE LIMITED
  Company Number: DE-EMA-DD-20250417-7482675-053747

PATIENT

DRUGS (26)
  1. SUNITINIB [Suspect]
     Active Substance: SUNITINIB
     Indication: Gastrointestinal stromal tumour
     Dosage: 37.5 MG, ONCE A DAY (QD)
     Route: 048
     Dates: start: 20240716, end: 20241228
  2. SUNITINIB [Suspect]
     Active Substance: SUNITINIB
     Dosage: 37.5 MG, ONCE A DAY (QD)
     Route: 048
     Dates: start: 20250218
  3. LEVOFLOXACIN [Suspect]
     Active Substance: LEVOFLOXACIN
     Indication: Bacteraemia
     Dosage: 500 MG, BID
     Route: 048
     Dates: start: 20250122, end: 20250127
  4. SODIUM PERCHLORATE [Suspect]
     Active Substance: SODIUM PERCHLORATE
     Indication: Hyperthyroidism
     Route: 048
     Dates: start: 202501, end: 202501
  5. METHIMAZOLE [Suspect]
     Active Substance: METHIMAZOLE
     Indication: Hyperthyroidism
     Dosage: 5 MG, ONCE A DAY (QD)
     Route: 065
     Dates: start: 202501, end: 20250127
  6. CLINDAMYCIN [Concomitant]
     Active Substance: CLINDAMYCIN
     Indication: Product used for unknown indication
     Route: 065
  7. Natriumperchlorat Dyckerhoff [Concomitant]
     Indication: Product used for unknown indication
     Route: 065
  8. PENICILLIN G [Concomitant]
     Active Substance: PENICILLIN G
     Indication: Product used for unknown indication
     Route: 065
  9. Study drug CGT9486 [Concomitant]
     Indication: Gastrointestinal stromal tumour
     Route: 065
     Dates: start: 20240717, end: 20241228
  10. ENOXAPARIN SODIUM [Concomitant]
     Active Substance: ENOXAPARIN SODIUM
     Indication: Product used for unknown indication
     Route: 065
  11. MEPERIDINE [Concomitant]
     Active Substance: MEPERIDINE
     Indication: Abdominal pain
     Route: 058
     Dates: start: 20250218
  12. Fermed [Concomitant]
     Indication: Product used for unknown indication
     Route: 065
  13. Jonosteril [Concomitant]
     Indication: Electrolyte substitution therapy
     Route: 042
  14. Kalinor [Concomitant]
     Indication: Product used for unknown indication
     Route: 065
  15. KETAMIN [Concomitant]
     Active Substance: KETAMINE
     Indication: Product used for unknown indication
     Route: 065
  16. LOPERAMIDE [Concomitant]
     Active Substance: LOPERAMIDE
     Indication: Product used for unknown indication
     Route: 065
  17. METOCLOPRAMIDE [Concomitant]
     Active Substance: METOCLOPRAMIDE
     Indication: Nausea
     Route: 042
     Dates: start: 20250218
  18. MOVICOL [Concomitant]
     Active Substance: POLYETHYLENE GLYCOL 3350\POTASSIUM CHLORIDE\SODIUM BICARBONATE\SODIUM CHLORIDE
     Indication: Product used for unknown indication
     Route: 065
  19. Novalgin [Concomitant]
     Indication: Abdominal pain
     Dosage: 1000 MG, QID
     Route: 042
     Dates: end: 20250219
  20. ACETAMINOPHEN [Concomitant]
     Active Substance: ACETAMINOPHEN
     Indication: Product used for unknown indication
     Route: 065
  21. PROPOFOL [Concomitant]
     Active Substance: PROPOFOL
     Indication: Product used for unknown indication
     Route: 065
  22. SALINE [Concomitant]
     Active Substance: SODIUM CHLORIDE
     Indication: Product used for unknown indication
     Route: 065
  23. SPIRONOLACTONE [Concomitant]
     Active Substance: SPIRONOLACTONE
     Indication: Product used for unknown indication
     Route: 065
  24. PIPERACILLIN SODIUM\TAZOBACTAM SODIUM [Concomitant]
     Active Substance: PIPERACILLIN SODIUM\TAZOBACTAM SODIUM
     Indication: Product used for unknown indication
     Route: 065
  25. TORSEMIDE [Concomitant]
     Active Substance: TORSEMIDE
     Indication: Product used for unknown indication
     Route: 065
  26. SALINE [Concomitant]
     Active Substance: SODIUM CHLORIDE
     Indication: Product used for unknown indication
     Route: 065

REACTIONS (6)
  - Erysipelas [Unknown]
  - Escherichia bacteraemia [Unknown]
  - Blood alkaline phosphatase increased [Unknown]
  - Bilirubin conjugated increased [Unknown]
  - Liver function test increased [Recovered/Resolved]
  - Blood bilirubin increased [Recovered/Resolved]

NARRATIVE: CASE EVENT DATE: 20250127
